FAERS Safety Report 8111455-3 (Version None)
Quarter: 2012Q1

REPORT INFORMATION
  Report Type: 
  Country: None (occurrence: None)
  Receive Date: 20120203
  Receipt Date: 20120131
  Transmission Date: 20120608
  Serious: Yes (Hospitalization)
  Sender: FDA-Public Use
  Company Number: IT-BRISTOL-MYERS SQUIBB COMPANY-16360018

PATIENT
  Age: 76 Year
  Sex: Male

DRUGS (6)
  1. COUMADIN [Suspect]
     Indication: ATRIAL FIBRILLATION
     Route: 048
     Dates: start: 20060804, end: 20110804
  2. CARVEDILOL [Concomitant]
  3. ALFUZOSIN HCL [Concomitant]
  4. RANIDIL [Concomitant]
  5. ZANEDIP [Concomitant]
  6. LANOXIN [Concomitant]

REACTIONS (4)
  - SUBDURAL HAEMATOMA [None]
  - HEAD INJURY [None]
  - HAEMORRHAGE INTRACRANIAL [None]
  - FALL [None]
